FAERS Safety Report 10081664 (Version 1)
Quarter: 2014Q2

REPORT INFORMATION
  Report Type: Spontaneous
  Country: DE (occurrence: DE)
  Receive Date: 20140416
  Receipt Date: 20140416
  Transmission Date: 20141212
  Serious: Yes (Other)
  Sender: FDA-Public Use
  Company Number: DE-BAYER-2014-055237

PATIENT
  Sex: Male
  Weight: 1.04 kg

DRUGS (1)
  1. BETAFERON [Suspect]
     Route: 064

REACTIONS (3)
  - Low birth weight baby [None]
  - Premature baby [None]
  - Foetal exposure during pregnancy [None]
